FAERS Safety Report 25954659 (Version 1)
Quarter: 2025Q4

REPORT INFORMATION
  Report Type: Spontaneous
  Country: US (occurrence: US)
  Receive Date: 20251024
  Receipt Date: 20251024
  Transmission Date: 20260118
  Serious: Yes (Other)
  Sender: ALEXION PHARMACEUTICALS
  Company Number: US-AstraZeneca-CH-00975019A

PATIENT
  Age: 59 Year
  Sex: Female

DRUGS (1)
  1. LYNPARZA [Suspect]
     Active Substance: OLAPARIB
     Route: 065

REACTIONS (8)
  - Peripheral swelling [Unknown]
  - Pain [Unknown]
  - Weight increased [Unknown]
  - Atrial fibrillation [Unknown]
  - Dyspnoea exertional [Unknown]
  - Nausea [Unknown]
  - Sensitive skin [Unknown]
  - Fatigue [Unknown]
